FAERS Safety Report 23038567 (Version 7)
Quarter: 2024Q1

REPORT INFORMATION
  Report Type: Spontaneous
  Country: US (occurrence: US)
  Receive Date: 20231006
  Receipt Date: 20240103
  Transmission Date: 20240409
  Serious: No
  Sender: FDA-Public Use
  Company Number: US-PFIZER INC-202300301616

PATIENT
  Age: 9 Year
  Sex: Female
  Weight: 24.2 kg

DRUGS (4)
  1. GENOTROPIN [Suspect]
     Active Substance: SOMATROPIN
     Indication: Turner^s syndrome
     Dosage: 1.4 MG, 1X/DAY (EVERY NIGHT AT BEDTIME)
     Route: 058
     Dates: start: 20230707
  2. GENOTROPIN [Suspect]
     Active Substance: SOMATROPIN
     Indication: Hypopituitarism
  3. GENOTROPIN [Suspect]
     Active Substance: SOMATROPIN
     Indication: Karyotype analysis abnormal
  4. GENOTROPIN [Suspect]
     Active Substance: SOMATROPIN
     Indication: Short stature

REACTIONS (1)
  - Liquid product physical issue [Unknown]

NARRATIVE: CASE EVENT DATE: 20230913
